FAERS Safety Report 7359831-0 (Version None)
Quarter: 2011Q1

REPORT INFORMATION
  Report Type: 
  Country: None (occurrence: None)
  Receive Date: 20110317
  Receipt Date: 20110220
  Transmission Date: 20110831
  Serious: No
  Sender: FDA-Public Use
  Company Number: US-B.I. PHARMACEUTICALS,INC./RIDGEFIELD-2011-BP-06405BP

PATIENT
  Sex: Female

DRUGS (10)
  1. NORVASC [Concomitant]
     Indication: HYPERTENSION
     Dosage: 5 MG
     Route: 048
  2. PROBIOTIC [Concomitant]
     Indication: CLOSTRIDIAL INFECTION
     Route: 048
  3. GLUCOSAMINE [Concomitant]
     Indication: ARTHRITIS
     Dosage: 1500 MG
     Route: 048
  4. CLONIDINE [Concomitant]
     Route: 048
  5. LACTINEX [Concomitant]
     Indication: CLOSTRIDIAL INFECTION
     Route: 048
  6. HYDROCODONE [Concomitant]
     Indication: ARTHRITIS
     Route: 048
  7. OXYCONTIN [Concomitant]
     Indication: ARTHRITIS
     Dosage: 10 MG
     Route: 048
  8. PRADAXA [Suspect]
     Indication: ATRIAL FIBRILLATION
     Dosage: 300 MG
     Route: 048
     Dates: start: 20110213
  9. LISINOPRIL [Concomitant]
     Indication: HYPERTENSION
     Dosage: 40 MG
     Route: 048
  10. CLONIDINE [Concomitant]
     Indication: HYPERTENSION
     Route: 048

REACTIONS (3)
  - HAEMATOMA [None]
  - RASH MACULAR [None]
  - SYNOVIAL DISORDER [None]
